FAERS Safety Report 6148537-1 (Version None)
Quarter: 2009Q2

REPORT INFORMATION
  Report Type: 
  Country: None (occurrence: None)
  Receive Date: 20090406
  Receipt Date: 20090406
  Transmission Date: 20091009
  Serious: Yes (Other)
  Sender: FDA-Public Use
  Company Number: None

PATIENT
  Age: 23 Year
  Sex: Female
  Weight: 72.5755 kg

DRUGS (1)
  1. VAGISTAT-1 [Suspect]
     Indication: VULVOVAGINAL MYCOTIC INFECTION
     Dosage: 1 DOSE 1 VAG
     Route: 067
     Dates: start: 20090331, end: 20090401

REACTIONS (8)
  - DRUG HYPERSENSITIVITY [None]
  - DYSURIA [None]
  - GAIT DISTURBANCE [None]
  - GENITAL PAIN [None]
  - INSOMNIA [None]
  - OEDEMA GENITAL [None]
  - SKIN IRRITATION [None]
  - VULVOVAGINAL BURNING SENSATION [None]
